FAERS Safety Report 5070184-3 (Version None)
Quarter: 2006Q3

REPORT INFORMATION
  Report Type: 
  Country: None (occurrence: None)
  Receive Date: 20060803
  Receipt Date: 20060323
  Transmission Date: 20061208
  Serious: Yes (Hospitalization, Disabling)
  Sender: FDA-Public Use
  Company Number: AU-BOEHRINGER INGELHEIM PHARMACEUTICALS, INC.-2006-BP-03261AU

PATIENT
  Sex: Female
  Weight: 67 kg

DRUGS (3)
  1. MICARDIS [Suspect]
     Indication: HYPERTENSION
     Route: 048
     Dates: start: 20051123
  2. ASTRIX [Concomitant]
     Route: 048
     Dates: start: 20000526
  3. XALATAN [Concomitant]
     Indication: GLAUCOMA
     Dosage: 50 MCG/ML
     Route: 031
     Dates: start: 19990101

REACTIONS (2)
  - CEREBRAL INFARCTION [None]
  - HEMIPARESIS [None]
